FAERS Safety Report 6018692-2 (Version None)
Quarter: 2008Q4

REPORT INFORMATION
  Report Type: 
  Country: None (occurrence: None)
  Receive Date: 20081223
  Receipt Date: 20081208
  Transmission Date: 20090506
  Serious: Yes (Hospitalization)
  Sender: FDA-Public Use
  Company Number: US-GENENTECH-273257

PATIENT
  Sex: Male
  Weight: 78.639 kg

DRUGS (20)
  1. BEVACIZUMAB [Suspect]
     Indication: NON-SMALL CELL LUNG CANCER
     Dosage: 10 MG/KG, Q2W
     Route: 042
  2. ALIMTA [Suspect]
     Indication: NON-SMALL CELL LUNG CANCER
     Dosage: 500 MG/M2, Q2W
     Route: 042
     Dates: start: 20080805
  3. GEMZAR [Suspect]
     Indication: NON-SMALL CELL LUNG CANCER
     Dosage: 1500 MG/M2, Q2W
     Route: 042
     Dates: start: 20080805
  4. ASPIRIN [Concomitant]
     Indication: DRUG USE FOR UNKNOWN INDICATION
  5. COMPAZINE [Concomitant]
     Indication: DRUG USE FOR UNKNOWN INDICATION
  6. TENORMIN [Concomitant]
     Indication: DRUG USE FOR UNKNOWN INDICATION
  7. FOLIC ACID [Concomitant]
     Indication: DRUG USE FOR UNKNOWN INDICATION
     Dosage: 1 MG, QD
     Route: 048
     Dates: start: 20080728
  8. MILK OF MAGNESIA [Concomitant]
     Indication: DRUG USE FOR UNKNOWN INDICATION
  9. DULCOLAX [Concomitant]
     Indication: DRUG USE FOR UNKNOWN INDICATION
  10. FISH OIL [Concomitant]
     Indication: DRUG USE FOR UNKNOWN INDICATION
  11. NIACIN [Concomitant]
     Indication: DRUG USE FOR UNKNOWN INDICATION
  12. ZOCOR [Concomitant]
     Indication: DRUG USE FOR UNKNOWN INDICATION
  13. MEGACE [Concomitant]
     Indication: DRUG USE FOR UNKNOWN INDICATION
  14. VITAMIN B-12 [Concomitant]
     Indication: DRUG USE FOR UNKNOWN INDICATION
     Dosage: 1 MG, UNK
     Route: 030
     Dates: start: 20080728
  15. SCOPOLAMINE [Concomitant]
     Indication: DRUG USE FOR UNKNOWN INDICATION
  16. ARANESP [Concomitant]
     Indication: DRUG USE FOR UNKNOWN INDICATION
     Dosage: UNK
     Dates: start: 20080930
  17. DECADRON [Concomitant]
     Indication: DRUG USE FOR UNKNOWN INDICATION
     Dosage: 4 MG, UNK
     Dates: start: 20080804
  18. DOCUSATE [Concomitant]
     Indication: DRUG USE FOR UNKNOWN INDICATION
  19. ZANTAC [Concomitant]
     Indication: DRUG USE FOR UNKNOWN INDICATION
  20. HYDROCODONE BITARTRATE [Concomitant]
     Indication: PAIN

REACTIONS (4)
  - ADVERSE DRUG REACTION [None]
  - ANAEMIA [None]
  - DIZZINESS [None]
  - HALLUCINATION [None]
